FAERS Safety Report 5955952-5 (Version None)
Quarter: 2008Q4

REPORT INFORMATION
  Report Type: 
  Country: None (occurrence: None)
  Receive Date: 20081112
  Receipt Date: 20081104
  Transmission Date: 20090506
  Serious: Yes (Death)
  Sender: FDA-Public Use
  Company Number: 2008S1000102

PATIENT
  Age: 1 Month
  Sex: Female

DRUGS (4)
  1. INOMAX [Suspect]
     Indication: MECHANICAL VENTILATION
     Dosage: 20 PPM; CONT; INH, 10 PPM; CONT; INH, 5 PPM; CONT; INH, 2 PPM; CONT; INH
     Route: 055
     Dates: end: 20081026
  2. INOMAX [Suspect]
     Indication: PREMATURE BABY
     Dosage: 20 PPM; CONT; INH, 10 PPM; CONT; INH, 5 PPM; CONT; INH, 2 PPM; CONT; INH
     Route: 055
     Dates: end: 20081026
  3. INOMAX [Suspect]
     Indication: MECHANICAL VENTILATION
     Dosage: 20 PPM; CONT; INH, 10 PPM; CONT; INH, 5 PPM; CONT; INH, 2 PPM; CONT; INH
     Route: 055
     Dates: start: 20081003
  4. INOMAX [Suspect]
     Indication: PREMATURE BABY
     Dosage: 20 PPM; CONT; INH, 10 PPM; CONT; INH, 5 PPM; CONT; INH, 2 PPM; CONT; INH
     Route: 055
     Dates: start: 20081003

REACTIONS (5)
  - BRADYCARDIA [None]
  - METABOLIC ACIDOSIS [None]
  - NECROTISING COLITIS [None]
  - PNEUMATOSIS [None]
  - PREMATURE BABY [None]
